FAERS Safety Report 24712729 (Version 1)
Quarter: 2024Q4

REPORT INFORMATION
  Report Type: Spontaneous
  Country: US (occurrence: None)
  Receive Date: 20241208
  Receipt Date: 20241208
  Transmission Date: 20250115
  Serious: Yes (Disabling, Other)
  Sender: Public
  Company Number: None

PATIENT
  Age: 36 Year
  Sex: Male

DRUGS (5)
  1. ACETAMINOPHEN\BUTALBITAL\CAFFEINE [Suspect]
     Active Substance: ACETAMINOPHEN\BUTALBITAL\CAFFEINE
     Indication: Tension headache
  2. FAMOTIDINE [Concomitant]
     Active Substance: FAMOTIDINE
  3. IBUPROFEN [Concomitant]
     Active Substance: IBUPROFEN
  4. SUMATRIPTAN [Concomitant]
     Active Substance: SUMATRIPTAN
  5. Polyethylene glycol 3350 oral laxative solution [Concomitant]

REACTIONS (3)
  - Neck pain [None]
  - Muscle tightness [None]
  - Oropharyngeal pain [None]
